FAERS Safety Report 6580144-9 (Version None)
Quarter: 2010Q1

REPORT INFORMATION
  Report Type: 
  Country: None (occurrence: None)
  Receive Date: 20100212
  Receipt Date: 20100203
  Transmission Date: 20100710
  Serious: Yes (Hospitalization)
  Sender: FDA-Public Use
  Company Number: JP-ROCHE-632341

PATIENT
  Sex: Female
  Weight: 57 kg

DRUGS (29)
  1. TOCILIZUMAB [Suspect]
     Indication: RHEUMATOID ARTHRITIS
     Route: 041
     Dates: start: 20090422, end: 20090422
  2. DIAPHENYLSULFONE [Suspect]
     Indication: SKIN ULCER
     Dosage: DRUG NAME: LECTISOL (DIAPHENYLSULFONE)
     Route: 048
     Dates: end: 20090423
  3. DIAPHENYLSULFONE [Suspect]
     Route: 048
     Dates: start: 20090521
  4. AZULFIDINE [Concomitant]
     Dosage: ROUTE: ENTERIC COATING DRUG
     Route: 048
  5. RIMATIL [Concomitant]
     Route: 048
  6. PREDONINE [Concomitant]
     Route: 048
     Dates: end: 20090507
  7. PREDONINE [Concomitant]
     Route: 048
     Dates: start: 20090508
  8. ASPARA K [Concomitant]
     Dosage: DRUG NAME: ASPARA POTASSIUM (POTASSIUM L-ASPARATE)
     Route: 048
  9. WASSER V [Concomitant]
     Dosage: FORM: GRANULATED POWDER
     Route: 048
  10. FERROMIA [Concomitant]
     Route: 048
  11. LAMISIL [Concomitant]
     Dosage: DOSE FORM: EXTERNAL APPLICATION LIQUID MEDICINE, DOSAGE ADJUSTED. NOTE: PROPER QUANTITY
     Route: 061
  12. VOLTAREN [Concomitant]
     Dosage: FORM: OINTMENT AND CREAM, DOSAGE ADJUSTED. NOTE: PROPER QUANTITY
     Route: 061
  13. CRAVIT [Concomitant]
     Dosage: DOSAGE ADJUSTED. NOTE: PROPER QUANTITY
     Route: 047
  14. CARTEOLOL HYDROCHLORIDE [Concomitant]
     Dosage: DOSAGE ADJUSTED. NOTE: PROPER QUANTITY
     Route: 047
  15. XALATAN [Concomitant]
     Dosage: DOSAGE ADJUSTED. NOTE: PROPER QUANTITY
     Route: 047
  16. ALESION [Concomitant]
  17. MYSER [Concomitant]
  18. FOLIAMIN [Concomitant]
     Route: 048
  19. MOBIC [Concomitant]
     Route: 048
  20. JUVELA N [Concomitant]
     Route: 048
  21. LOXONIN [Concomitant]
     Route: 048
  22. AMLODIPINE [Concomitant]
     Dosage: DRUG: AMLODIN OD
     Route: 048
  23. SHAKUYAKU-KANZO-TO [Concomitant]
  24. CEFDINIR [Concomitant]
  25. BIOFERMIN R [Concomitant]
  26. SULFADIAZINE SILVER [Concomitant]
     Dosage: DRUG REPORTED AS ^GEBEN^. FORM: OINTMENT AND CREAM
     Route: 061
  27. FELBINAC [Concomitant]
     Dosage: DRUG NAME REPORTED AS ^SELTOUCH^
  28. RHEUMATREX [Concomitant]
     Route: 048
  29. TEPRENONE [Concomitant]
     Dosage: DRUG: SEFTAC
     Route: 048

REACTIONS (1)
  - DERMATITIS BULLOUS [None]
